FAERS Safety Report 24066254 (Version 1)
Quarter: 2024Q3

REPORT INFORMATION
  Report Type: Spontaneous
  Country: US (occurrence: US)
  Receive Date: 20240709
  Receipt Date: 20240709
  Transmission Date: 20241016
  Serious: Yes (Hospitalization, Other)
  Sender: CB FLEET
  Company Number: US-PRESTIGE-202406-US-002068

PATIENT
  Age: 67 Year
  Sex: Male

DRUGS (1)
  1. ASPIRIN [Suspect]
     Active Substance: ASPIRIN
     Indication: Product used for unknown indication
     Dosage: UNKNOWN
     Route: 048

REACTIONS (5)
  - Toxicity to various agents [Recovered/Resolved]
  - Atrioventricular block second degree [Recovered/Resolved]
  - Mental status changes [Recovered/Resolved]
  - Somnolence [Recovered/Resolved]
  - Agitation [Recovered/Resolved]
